FAERS Safety Report 14226689 (Version 2)
Quarter: 2017Q4

REPORT INFORMATION
  Report Type: Spontaneous
  Country: US (occurrence: US)
  Receive Date: 20171127
  Receipt Date: 20171211
  Transmission Date: 20180321
  Serious: No
  Sender: FDA-Public Use
  Company Number: US-SUNOVION-2017SUN004958

PATIENT
  Weight: 55.78 kg

DRUGS (1)
  1. LATUDA [Suspect]
     Active Substance: LURASIDONE HYDROCHLORIDE
     Indication: BIPOLAR DISORDER
     Dosage: 20 MG, QD
     Route: 048
     Dates: start: 20171110, end: 20171115

REACTIONS (3)
  - Night sweats [Recovered/Resolved]
  - Abnormal dreams [Recovered/Resolved]
  - Enuresis [Recovered/Resolved]
